FAERS Safety Report 4503821-X (Version None)
Quarter: 2004Q4

REPORT INFORMATION
  Report Type: 
  Country: None (occurrence: None)
  Receive Date: 20041117
  Receipt Date: 20041108
  Transmission Date: 20050328
  Serious: Yes (Hospitalization)
  Sender: FDA-Public Use
  Company Number: CH-MERCK-0411CHE00026

PATIENT
  Age: 83 Year
  Sex: Male

DRUGS (7)
  1. VIOXX [Suspect]
     Route: 048
     Dates: start: 20040206, end: 20040226
  2. CELECOXIB [Suspect]
     Route: 048
     Dates: start: 20040227, end: 20040410
  3. BUTHIAZIDE [Suspect]
     Route: 048
     Dates: end: 20040410
  4. TIZANIDINE HYDROCHLORIDE [Suspect]
     Indication: ARTHRALGIA
     Route: 048
     Dates: start: 20040227, end: 20040410
  5. OXPRENOLOL HYDROCHLORIDE [Suspect]
     Indication: HYPERTENSION
     Route: 048
     Dates: end: 20040410
  6. ASCORBIC ACID AND VITAMIN B (UNSPECIFIED) [Concomitant]
     Route: 065
     Dates: start: 20040206
  7. ENTEROCOCCUS FAECIUM (AS DRUG) [Concomitant]
     Route: 065

REACTIONS (3)
  - DIARRHOEA [None]
  - DRUG INTERACTION [None]
  - RENAL FAILURE ACUTE [None]
